FAERS Safety Report 7997241-3 (Version None)
Quarter: 2011Q4

REPORT INFORMATION
  Report Type: 
  Country: None (occurrence: None)
  Receive Date: 20111221
  Receipt Date: 20111219
  Transmission Date: 20120403
  Serious: Yes (Hospitalization)
  Sender: FDA-Public Use
  Company Number: FR-SANOFI-AVENTIS-2011SA055496

PATIENT
  Age: 53 Year
  Sex: Male

DRUGS (10)
  1. RENAGEL [Suspect]
     Route: 048
  2. KEPPRA [Concomitant]
  3. ARANESP [Suspect]
  4. CALCIUM CARBONATE [Suspect]
  5. DEPAKENE [Suspect]
     Indication: EPILEPSY
     Route: 048
     Dates: start: 20110716
  6. KAYEXALATE [Suspect]
     Route: 048
     Dates: start: 20110603
  7. PREDNISONE TAB [Suspect]
     Dates: start: 20110501
  8. CALCIPARINE [Suspect]
     Dates: start: 20110708, end: 20110808
  9. EUPRESSYL [Suspect]
     Route: 048
     Dates: start: 20110529
  10. CITALOPRAM [Suspect]
     Route: 048

REACTIONS (3)
  - THROMBOCYTOPENIA [None]
  - RENAL FAILURE [None]
  - ANAEMIA [None]
